FAERS Safety Report 20058775 (Version 1)
Quarter: 2021Q4

REPORT INFORMATION
  Report Type: Spontaneous
  Country: US (occurrence: US)
  Receive Date: 20211111
  Receipt Date: 20211111
  Transmission Date: 20220303
  Serious: Yes (Death)
  Sender: FDA-Public Use
  Company Number: US-TEVA-2021-US-1975070

PATIENT
  Age: 50 Year
  Sex: Male

DRUGS (5)
  1. FENTANYL [Suspect]
     Active Substance: FENTANYL
     Indication: Product used for unknown indication
     Route: 065
  2. PHENYLEPHRINE [Suspect]
     Active Substance: PHENYLEPHRINE HYDROCHLORIDE
     Indication: Toxicity to various agents
     Route: 065
  3. ACETYLCYSTEINE [Suspect]
     Active Substance: ACETYLCYSTEINE
     Indication: Toxicity to various agents
     Route: 065
  4. NALOXONE [Suspect]
     Active Substance: NALOXONE
     Indication: Toxicity to various agents
     Route: 065
  5. NALMEFENE [Suspect]
     Active Substance: NALMEFENE
     Indication: Toxicity to various agents
     Route: 065

REACTIONS (9)
  - Hepatotoxicity [Fatal]
  - Toxicity to various agents [Fatal]
  - Bradypnoea [Fatal]
  - Respiratory depression [Fatal]
  - Coma [Fatal]
  - Depressed level of consciousness [Fatal]
  - Acute kidney injury [Fatal]
  - Rhabdomyolysis [Fatal]
  - Drug ineffective [Fatal]
